FAERS Safety Report 19705755 (Version 2)
Quarter: 2021Q3

REPORT INFORMATION
  Report Type: Report from Study
  Country: None (occurrence: IL)
  Receive Date: 20210817
  Receipt Date: 20210820
  Transmission Date: 20211014
  Serious: Yes (Hospitalization)
  Sender: FDA-Public Use
  Company Number: IL-ABBVIE-20K-082-3311167-00

PATIENT
  Age: 13 Year
  Sex: Female

DRUGS (4)
  1. HUMIRA [Suspect]
     Active Substance: ADALIMUMAB
     Route: 058
     Dates: start: 202106
  2. ZALDIAR [Suspect]
     Active Substance: ACETAMINOPHEN\TRAMADOL HYDROCHLORIDE
     Indication: PRODUCT USED FOR UNKNOWN INDICATION
     Dosage: IN THE MORNING
     Route: 065
  3. HUMIRA [Suspect]
     Active Substance: ADALIMUMAB
     Indication: HIDRADENITIS
     Route: 058
     Dates: start: 20200223, end: 202104
  4. TRAMADEX [Concomitant]
     Active Substance: TRAMADOL
     Indication: PRODUCT USED FOR UNKNOWN INDICATION

REACTIONS (20)
  - Coccydynia [Not Recovered/Not Resolved]
  - Abdominal pain upper [Unknown]
  - Skin lesion [Unknown]
  - Dermatitis [Recovering/Resolving]
  - Nausea [Unknown]
  - Musculoskeletal chest pain [Unknown]
  - Somnolence [Unknown]
  - Rash erythematous [Unknown]
  - Contusion [Recovering/Resolving]
  - Arthralgia [Recovered/Resolved]
  - Vomiting [Unknown]
  - Arthralgia [Unknown]
  - Pain of skin [Recovering/Resolving]
  - Chest pain [Unknown]
  - Bone pain [Unknown]
  - Gait disturbance [Unknown]
  - Pain in extremity [Unknown]
  - Ecchymosis [Recovering/Resolving]
  - Drug ineffective [Unknown]
  - Pain [Unknown]

NARRATIVE: CASE EVENT DATE: 2020
